FAERS Safety Report 15976410 (Version 1)
Quarter: 2019Q1

REPORT INFORMATION
  Report Type: Spontaneous
  Country: MM (occurrence: MM)
  Receive Date: 20190218
  Receipt Date: 20190218
  Transmission Date: 20190418
  Serious: Yes (Death, Other)
  Sender: FDA-Public Use
  Company Number: MM-JNJFOC-20190213473

PATIENT
  Age: 23 Year
  Sex: Female
  Weight: 34 kg

DRUGS (21)
  1. PARA-AMINOSALICYLIC ACID [Suspect]
     Active Substance: AMINOSALICYLIC ACID
     Indication: TUBERCULOSIS
     Route: 048
     Dates: start: 20181015, end: 20181206
  2. FERROUS SULFATE. [Concomitant]
     Active Substance: FERROUS SULFATE
     Indication: ANAEMIA
     Route: 048
     Dates: start: 20190115
  3. VENTOLINE [Concomitant]
     Active Substance: ALBUTEROL
     Indication: ASTHMA
     Dosage: 2 PUFF
     Route: 055
     Dates: start: 20190206
  4. DELAMANID [Suspect]
     Active Substance: DELAMANID
     Indication: TUBERCULOSIS
     Route: 048
     Dates: start: 20181015, end: 20181120
  5. PARA-AMINOSALICYLIC ACID [Suspect]
     Active Substance: AMINOSALICYLIC ACID
     Indication: TUBERCULOSIS
     Route: 048
     Dates: start: 20190108
  6. PYRIDOXINE [Concomitant]
     Active Substance: PYRIDOXINE
     Indication: PROPHYLAXIS
     Route: 048
     Dates: start: 20181015
  7. CALCIVITA [Concomitant]
     Indication: HYPOCALCAEMIA
     Route: 048
     Dates: start: 20181213
  8. DERIPHYLLIN [Concomitant]
     Active Substance: ETOFYLLINE\THEOPHYLLINE
     Indication: ASTHMA
     Dosage: HALF DOSE
     Route: 065
     Dates: start: 20190201
  9. VENTOLINE [Concomitant]
     Active Substance: ALBUTEROL
     Indication: ASTHMA
     Dosage: 2 PUFF
     Route: 055
     Dates: start: 20190201, end: 20190206
  10. BEDAQUILINE [Suspect]
     Active Substance: BEDAQUILINE
     Indication: TUBERCULOSIS
     Dosage: 200 MG OD 3 TIMES PER WEEK
     Route: 048
     Dates: start: 20181015, end: 20181120
  11. BEDAQUILINE [Suspect]
     Active Substance: BEDAQUILINE
     Indication: TUBERCULOSIS
     Route: 048
     Dates: start: 20181214
  12. LINEZOLID. [Suspect]
     Active Substance: LINEZOLID
     Indication: TUBERCULOSIS
     Route: 048
     Dates: start: 20181015
  13. TAXIM O [Concomitant]
     Indication: RESPIRATORY TRACT INFECTION
     Route: 065
     Dates: start: 20190204
  14. LINEZOLID. [Suspect]
     Active Substance: LINEZOLID
     Indication: TUBERCULOSIS
     Route: 048
     Dates: start: 20190108
  15. CLOFAZIMINE [Suspect]
     Active Substance: CLOFAZIMINE
     Indication: TUBERCULOSIS
     Route: 048
     Dates: start: 20181101
  16. IMIPENEM [Suspect]
     Active Substance: IMIPENEM
     Indication: TUBERCULOSIS
     Route: 042
     Dates: start: 20181015
  17. AMOXICILLIN/CLAVULANIC ACID [Suspect]
     Active Substance: AMOXICILLIN\CLAVULANIC ACID
     Indication: TUBERCULOSIS
     Route: 048
     Dates: start: 20181015
  18. DELAMANID [Suspect]
     Active Substance: DELAMANID
     Indication: TUBERCULOSIS
     Route: 048
     Dates: start: 20181203
  19. VENTOLIN [Concomitant]
     Active Substance: ALBUTEROL SULFATE
     Indication: ASTHMA
     Route: 065
     Dates: start: 20190130
  20. PREDNISOLONE. [Concomitant]
     Active Substance: PREDNISOLONE
     Indication: ASTHMA
     Route: 065
     Dates: start: 20190201, end: 20190205
  21. NUCLEO CMP [Concomitant]
     Indication: NEUROPATHY PERIPHERAL
     Route: 065
     Dates: start: 20190122

REACTIONS (5)
  - Neuropathy peripheral [Unknown]
  - Ventricular extrasystoles [Unknown]
  - Asthma [Unknown]
  - Diarrhoea [Unknown]
  - Respiratory failure [Fatal]

NARRATIVE: CASE EVENT DATE: 201811
